FAERS Safety Report 14588227 (Version 1)
Quarter: 2018Q1

REPORT INFORMATION
  Report Type: Spontaneous
  Country: US (occurrence: US)
  Receive Date: 20180301
  Receipt Date: 20180301
  Transmission Date: 20180509
  Serious: No
  Sender: FDA-Public Use
  Company Number: US-MYLANLABS-2018M1009372

PATIENT
  Sex: Female
  Weight: 70 kg

DRUGS (1)
  1. ESTRADIOL VAGINAL CREAM USP [Suspect]
     Active Substance: ESTRADIOL
     Indication: VULVOVAGINAL DRYNESS
     Dosage: 1 G, Q2W
     Route: 067
     Dates: start: 2018

REACTIONS (8)
  - Incorrect dose administered [Recovered/Resolved]
  - Product label issue [None]
  - Uterine spasm [Recovered/Resolved]
  - Breast tenderness [Recovered/Resolved]
  - Device issue [None]
  - Product packaging issue [Unknown]
  - Abdominal discomfort [Recovered/Resolved]
  - Libido increased [Recovered/Resolved]
